FAERS Safety Report 4519680-5 (Version None)
Quarter: 2004Q4

REPORT INFORMATION
  Report Type: 
  Country: None (occurrence: None)
  Receive Date: 20041206
  Receipt Date: 20041125
  Transmission Date: 20050328
  Serious: Yes (Other)
  Sender: FDA-Public Use
  Company Number: PHBS2004CA15882

PATIENT
  Sex: Female

DRUGS (2)
  1. ZELNORM [Suspect]
     Indication: IRRITABLE BOWEL SYNDROME
     Dosage: 12 MG/DAY
     Route: 048
     Dates: start: 20030501, end: 20040401
  2. ZELNORM [Suspect]
     Route: 048
     Dates: start: 20041122

REACTIONS (4)
  - CHOLECYSTECTOMY [None]
  - CHOLELITHIASIS [None]
  - IRRITABLE BOWEL SYNDROME [None]
  - SURGERY [None]
